FAERS Safety Report 11117725 (Version 2)
Quarter: 2015Q2

REPORT INFORMATION
  Report Type: Report from Study
  Country: ZA (occurrence: ZA)
  Receive Date: 20150518
  Receipt Date: 20150521
  Transmission Date: 20150821
  Serious: Yes (Death, Hospitalization)
  Sender: FDA-Public Use
  Company Number: ZA-ROCHE-1550741

PATIENT
  Age: 53 Year
  Sex: Male
  Weight: 58 kg

DRUGS (17)
  1. CYCLOPHOSPHAMIDE. [Suspect]
     Active Substance: CYCLOPHOSPHAMIDE
     Indication: DIFFUSE LARGE B-CELL LYMPHOMA
     Dosage: X 1 DOSE
     Route: 042
     Dates: start: 20150303, end: 20150303
  2. PARACETAMOL [Concomitant]
     Active Substance: ACETAMINOPHEN
     Dosage: TWO TABLETS SIX HOURLY FOR 24 HOURS
     Route: 065
  3. RITUXIMAB [Suspect]
     Active Substance: RITUXIMAB
     Indication: NON-HODGKIN^S LYMPHOMA
     Dosage: X 1 DOSE
     Route: 042
     Dates: start: 20150303, end: 20150303
  4. ONCOVIN [Suspect]
     Active Substance: VINCRISTINE SULFATE
     Indication: DIFFUSE LARGE B-CELL LYMPHOMA
     Route: 065
  5. ETOPOSIDE. [Suspect]
     Active Substance: ETOPOSIDE
     Indication: DIFFUSE LARGE B-CELL LYMPHOMA
     Dosage: X 1 DOSE
     Route: 042
     Dates: start: 20150303, end: 20150303
  6. SPECTRAPAIN [Concomitant]
     Dosage: TWO THREE TIMERS PER DAY WHEN NECESSARY
     Route: 065
     Dates: start: 20150303
  7. KEFLEX [Concomitant]
     Active Substance: CEPHALEXIN
     Route: 048
     Dates: start: 20150303, end: 20150308
  8. CYCLOPHOSPHAMIDE. [Suspect]
     Active Substance: CYCLOPHOSPHAMIDE
     Route: 065
     Dates: start: 20141020
  9. ZOFRAN [Concomitant]
     Active Substance: ONDANSETRON HYDROCHLORIDE
     Dosage: X 1 DOSE
     Route: 042
     Dates: start: 20150303, end: 20150303
  10. ADRIAMYCIN [Suspect]
     Active Substance: DOXORUBICIN HYDROCHLORIDE
     Indication: DIFFUSE LARGE B-CELL LYMPHOMA
     Dosage: X 1 DOSE
     Route: 042
     Dates: start: 20150303, end: 20150303
  11. SOLU-CORTEF [Concomitant]
     Active Substance: HYDROCORTISONE SODIUM SUCCINATE
     Dosage: X 1 DOSE
     Route: 042
     Dates: start: 20150303, end: 20150303
  12. ADRIAMYCIN [Suspect]
     Active Substance: DOXORUBICIN HYDROCHLORIDE
     Route: 065
     Dates: start: 20141020
  13. SOLU-CORTEF [Concomitant]
     Active Substance: HYDROCORTISONE SODIUM SUCCINATE
     Route: 042
     Dates: start: 20150315, end: 20150315
  14. BECONASE AQ [Concomitant]
     Active Substance: BECLOMETHASONE DIPROPIONATE MONOHYDRATE
     Dosage: THREE TIMES PER DAY
     Route: 065
     Dates: start: 20150303
  15. ALLOPURINOL. [Concomitant]
     Active Substance: ALLOPURINOL
     Route: 065
  16. PREDNISONE. [Suspect]
     Active Substance: PREDNISONE
     Indication: DIFFUSE LARGE B-CELL LYMPHOMA
     Dosage: ONCE DAILY FOR 7 DAYS
     Route: 048
     Dates: start: 20150303, end: 20150309
  17. PHENERGAN [Concomitant]
     Active Substance: PROMETHAZINE HYDROCHLORIDE
     Route: 048

REACTIONS (8)
  - Neutropenic sepsis [Fatal]
  - Disseminated intravascular coagulation [Fatal]
  - Pneumonia [Fatal]
  - Septic shock [Fatal]
  - Multi-organ failure [Fatal]
  - Renal failure [Fatal]
  - Sepsis [Fatal]
  - Febrile neutropenia [Unknown]

NARRATIVE: CASE EVENT DATE: 20150308
